FAERS Safety Report 8904483 (Version 2)
Quarter: 2013Q1

REPORT INFORMATION
  Report Type: Spontaneous
  Country: US (occurrence: US)
  Receive Date: 20121112
  Receipt Date: 20130329
  Transmission Date: 20140127
  Serious: Yes (Hospitalization)
  Sender: FDA-Public Use
  Company Number: US-GILEAD-2012-0064367

PATIENT
  Sex: Male

DRUGS (3)
  1. LETAIRIS [Suspect]
     Indication: PULMONARY HYPERTENSION
     Dosage: 10 MG, QD
     Route: 048
     Dates: start: 20120625
  2. LETAIRIS [Suspect]
     Indication: OBESITY
  3. LETAIRIS [Suspect]
     Indication: HYPOXIA

REACTIONS (1)
  - Pulmonary fibrosis [Unknown]
